FAERS Safety Report 4918206-1 (Version None)
Quarter: 2006Q1

REPORT INFORMATION
  Report Type: 
  Country: None (occurrence: None)
  Receive Date: 20060215
  Receipt Date: 20050329
  Transmission Date: 20060701
  Serious: Yes (Life-Threatening, Hospitalization)
  Sender: FDA-Public Use
  Company Number: 003#3#2005-00104

PATIENT
  Age: 67 Year
  Sex: Female

DRUGS (5)
  1. ISOSORBIDE MONONITRATE [Suspect]
     Indication: CARDIOVASCULAR DISORDER
     Dosage: 10 MG
  2. BISOPROLOL (BISOPROLOL) [Suspect]
     Indication: CARDIOVASCULAR DISORDER
     Dosage: 5 MG
  3. BUMETANIDE [Suspect]
     Indication: CARDIOVASCULAR DISORDER
     Dosage: 2 MG
  4. ENALAPRIL MALEATE [Suspect]
     Indication: ANGIOPATHY
     Dosage: 10 MG
  5. ENALAPRIL MALEATE [Suspect]
     Indication: CARDIOVASCULAR DISORDER
     Dosage: 10 MG

REACTIONS (8)
  - BLOOD PRESSURE IMMEASURABLE [None]
  - BRADYCARDIA [None]
  - DIALYSIS [None]
  - DIARRHOEA [None]
  - ELECTROCARDIOGRAM P WAVE ABNORMAL [None]
  - ELECTROCARDIOGRAM QRS COMPLEX PROLONGED [None]
  - HYPERKALAEMIA [None]
  - RENAL FAILURE ACUTE [None]
